FAERS Safety Report 5403225-1 (Version None)
Quarter: 2007Q3

REPORT INFORMATION
  Report Type: 
  Country: None (occurrence: None)
  Receive Date: 20070801
  Receipt Date: 20070720
  Transmission Date: 20080115
  Serious: Yes (Death, Hospitalization)
  Sender: FDA-Public Use
  Company Number: PA-PFIZER INC-2007054711

PATIENT
  Sex: Male
  Weight: 67.8 kg

DRUGS (1)
  1. SU-011,248 [Suspect]
     Indication: RENAL CELL CARCINOMA STAGE UNSPECIFIED
     Route: 048
     Dates: start: 20070607, end: 20070628

REACTIONS (10)
  - ASTHENIA [None]
  - BLOOD PRESSURE DECREASED [None]
  - COMA [None]
  - DISEASE PROGRESSION [None]
  - MUCOSAL DRYNESS [None]
  - NECK MASS [None]
  - OEDEMA PERIPHERAL [None]
  - RESPIRATORY RATE INCREASED [None]
  - SEPSIS [None]
  - YELLOW SKIN [None]
